FAERS Safety Report 7904916-0 (Version None)
Quarter: 2011Q4

REPORT INFORMATION
  Report Type: 
  Country: None (occurrence: None)
  Receive Date: 20111109
  Receipt Date: 20111102
  Transmission Date: 20120403
  Serious: Yes (Other)
  Sender: FDA-Public Use
  Company Number: PHHY2011JP097137

PATIENT
  Sex: Male

DRUGS (4)
  1. CARBAMAZEPINE [Suspect]
     Dosage: 500 MG, UNK
  2. CARBAMAZEPINE [Suspect]
     Dosage: 300 MG, UNK
  3. BACLOFEN [Suspect]
     Dosage: 45 MG, UNK
  4. GOREISAN [Concomitant]

REACTIONS (5)
  - CEREBRAL INFARCTION [None]
  - DECREASED APPETITE [None]
  - MUSCULAR WEAKNESS [None]
  - VOMITING [None]
  - DIZZINESS [None]
